FAERS Safety Report 21399382 (Version 3)
Quarter: 2022Q4

REPORT INFORMATION
  Report Type: Report from Study
  Country: CH (occurrence: CH)
  Receive Date: 20221001
  Receipt Date: 20221021
  Transmission Date: 20230113
  Serious: Yes (Hospitalization)
  Sender: FDA-Public Use
  Company Number: CH-ABBVIE-4133765

PATIENT
  Sex: Male
  Weight: 83 kg

DRUGS (10)
  1. SKYRIZI [Suspect]
     Active Substance: RISANKIZUMAB-RZAA
     Indication: Psoriasis
     Route: 058
     Dates: start: 20210616
  2. Atorvastatin (Atorvastax) [Concomitant]
     Indication: Product used for unknown indication
     Dosage: IN THE MORNINGDAILY, IN THE MORNING
     Route: 048
  3. Fluconazolum (Fluconax) [Concomitant]
     Indication: Product used for unknown indication
     Dosage: IN THE MORNING?DURATION TEXT: 7-21 DAYS, STOP IF LIVER PARA. INCREASE.?7-21 DAYS, STOP IF LIVER P...
     Dates: start: 202209
  4. Chlorhexidini digluconas (Dentohexin solution) [Concomitant]
     Indication: Product used for unknown indication
     Dosage: IN THE MORNING
     Route: 065
  5. Acidum acetylsalicylicum (ASS Cardio Axapharm) [Concomitant]
     Indication: Product used for unknown indication
     Dosage: IN THE MORNINGFREQUENCY TEXT: DAILY, IN THE MORNING
     Route: 048
  6. Acidum acetylsalicylicum (Aspirin? Cardio) [Concomitant]
     Indication: Product used for unknown indication
     Dosage: IN THE MORNING
     Route: 048
     Dates: start: 202209
  7. Covid-19 vaccine [Concomitant]
     Indication: COVID-19 immunisation
     Dosage: THIRD DOSE, ONE IN ONCE
     Route: 030
     Dates: start: 20211216, end: 20211216
  8. HEPARIN [Concomitant]
     Active Substance: HEPARIN SODIUM
     Indication: Prophylaxis
     Dates: start: 202209
  9. HEPARIN [Concomitant]
     Active Substance: HEPARIN SODIUM
     Indication: Prophylaxis
     Dates: start: 202209
  10. HEPARIN [Concomitant]
     Active Substance: HEPARIN SODIUM
     Indication: Prophylaxis
     Route: 065
     Dates: start: 202209

REACTIONS (19)
  - Aortic aneurysm [Recovered/Resolved]
  - Haemoglobin decreased [Not Recovered/Not Resolved]
  - Oral candidiasis [Unknown]
  - C-reactive protein increased [Recovered/Resolved]
  - Leukocytosis [Recovered/Resolved]
  - Haematocrit decreased [Not Recovered/Not Resolved]
  - Mean cell volume increased [Recovered/Resolved]
  - Gastrointestinal wall thickening [Unknown]
  - Adrenal mass [Unknown]
  - COVID-19 [Recovered/Resolved]
  - Blood alkaline phosphatase increased [Unknown]
  - Prothrombin time shortened [Not Recovered/Not Resolved]
  - Dyslipidaemia [Not Recovered/Not Resolved]
  - Gamma-glutamyltransferase increased [Recovered/Resolved]
  - Red blood cell count decreased [Not Recovered/Not Resolved]
  - Aspartate aminotransferase increased [Recovered/Resolved]
  - Thrombocytopenia [Recovered/Resolved]
  - Adrenal adenoma [Unknown]
  - Iliac artery disease [Unknown]

NARRATIVE: CASE EVENT DATE: 20211201
